FAERS Safety Report 9026305 (Version 1)
Quarter: 2012Q4

REPORT INFORMATION
  Report Type: Spontaneous
  Country: US (occurrence: None)
  Receive Date: 20121214
  Receipt Date: 20121214
  Transmission Date: 20130627
  Serious: Yes (Other)
  Sender: FDA-Public Use
  Company Number: None

PATIENT
  Sex: Male
  Weight: 90.72 kg

DRUGS (1)
  1. CITALOPRAM 20 MG [Suspect]
     Indication: DEPRESSION
     Route: 048

REACTIONS (3)
  - Fatigue [None]
  - Feeling abnormal [None]
  - Dyspnoea [None]
